FAERS Safety Report 8963432 (Version 2)
Quarter: 2012Q4

REPORT INFORMATION
  Report Type: 
  Country: AU (occurrence: AU)
  Receive Date: 20121214
  Receipt Date: 20121223
  Transmission Date: 20130627
  Serious: Yes (Other)
  Sender: FDA-Public Use
  Company Number: AU-AMGEN-AUSSP2012080476

PATIENT
  Sex: Male

DRUGS (2)
  1. NEULASTA [Suspect]
     Indication: NEUTROPENIA
     Dosage: UNK
  2. CHEMOTHERAPEUTICS [Concomitant]
     Dosage: UNK
     Dates: start: 2012

REACTIONS (1)
  - Acute myeloid leukaemia [Unknown]
